FAERS Safety Report 4650646-0 (Version None)
Quarter: 2005Q2

REPORT INFORMATION
  Report Type: 
  Country: None (occurrence: None)
  Receive Date: 20050331
  Receipt Date: 20050117
  Transmission Date: 20051028
  Serious: No
  Sender: FDA-Public Use
  Company Number: 05P-163-0288044-00

PATIENT
  Age: 42 Year
  Sex: Female
  Weight: 65.7716 kg

DRUGS (21)
  1. HUMIRA [Suspect]
     Indication: RHEUMATOID ARTHRITIS
     Dosage: 40 MG, 1 IN 2 WK, SUBCUTANEOUS
     Route: 058
     Dates: start: 20041124
  2. MESALAMINE [Concomitant]
  3. ACARBOSE [Concomitant]
  4. NITROFURANTOIN [Concomitant]
  5. PROPACET 100 [Concomitant]
  6. FUROSEMIDE [Concomitant]
  7. ALENDRONATE SODIUM [Concomitant]
  8. PROPYLTHIOURACIL [Concomitant]
  9. PROVELLA-14 [Concomitant]
  10. ZOLPIDEM TARTRATE [Concomitant]
  11. METOCLOPRAMIDE [Concomitant]
  12. FAMOTIDINE [Concomitant]
  13. PANTOPRAZOLE SODIUM [Concomitant]
  14. PREDNISONE TAB [Concomitant]
  15. BUCINDOLOL HYDROCHLORIDE [Concomitant]
  16. ERGOCALCIFEROL [Concomitant]
  17. GABAPENTIN [Concomitant]
  18. NEURELAX [Concomitant]
  19. TOPIRAMATE [Concomitant]
  20. HYDROXYCHLOROQUINE PHOSPHATE [Concomitant]
  21. LISINOPRIL [Concomitant]

REACTIONS (2)
  - INJECTION SITE ERYTHEMA [None]
  - INJECTION SITE NODULE [None]
